FAERS Safety Report 4642176-7 (Version None)
Quarter: 2005Q2

REPORT INFORMATION
  Report Type: 
  Country: None (occurrence: None)
  Receive Date: 20050420
  Receipt Date: 20050405
  Transmission Date: 20051028
  Serious: Yes (Hospitalization)
  Sender: FDA-Public Use
  Company Number: USA050392511

PATIENT
  Age: 89 Year
  Sex: Female

DRUGS (10)
  1. FORTEO [Suspect]
     Indication: OSTEOPOROSIS
     Dates: start: 20041001
  2. PROTONIX [Concomitant]
  3. SYNTHROID [Concomitant]
  4. COUMADIN [Concomitant]
  5. DURAGESIC (FENTANYL) [Concomitant]
  6. IMBRILON (INDOMETACIN) [Concomitant]
  7. DIURETIC [Concomitant]
  8. CALCIUM GLUCONATE [Concomitant]
  9. PREDNISONE [Concomitant]
  10. ENBREL [Concomitant]

REACTIONS (9)
  - ASTHENIA [None]
  - CONSTIPATION [None]
  - MALAISE [None]
  - MUSCULAR WEAKNESS [None]
  - NAUSEA [None]
  - PHARMACEUTICAL PRODUCT COMPLAINT [None]
  - THROMBOSIS [None]
  - URINARY TRACT INFECTION [None]
  - VOMITING [None]
